FAERS Safety Report 14351410 (Version 1)
Quarter: 2018Q1

REPORT INFORMATION
  Report Type: Spontaneous
  Country: US (occurrence: US)
  Receive Date: 20180104
  Receipt Date: 20180104
  Transmission Date: 20180509
  Serious: Yes (Other)
  Sender: FDA-Public Use
  Company Number: US-PFIZER INC-2017553315

PATIENT
  Age: 55 Year
  Sex: Male
  Weight: 90.72 kg

DRUGS (6)
  1. MELOXICAM. [Concomitant]
     Active Substance: MELOXICAM
     Indication: ARTHRITIS
     Dosage: ONE TABLET ONCE A DAY
  2. ALLEGRA-D [Concomitant]
     Active Substance: FEXOFENADINE\PSEUDOEPHEDRINE
     Indication: HYPERSENSITIVITY
     Dosage: TAKES THIS OCCASIONALLY.
  3. LYRICA [Suspect]
     Active Substance: PREGABALIN
     Indication: FIBROMYALGIA
     Dosage: 50MG ONCE A DAY
     Dates: start: 201711, end: 2017
  4. LYRICA [Suspect]
     Active Substance: PREGABALIN
     Dosage: 50MG TWICE A DAY
     Dates: start: 2017
  5. CYCLOBENZAPRINE. [Concomitant]
     Active Substance: CYCLOBENZAPRINE
     Indication: TRIGEMINAL NEURALGIA
     Dosage: 1200MG A DAY
  6. CYCLOBENZAPRINE. [Concomitant]
     Active Substance: CYCLOBENZAPRINE
     Dosage: 200MG TABLET, TAKES TWO IN THE MORNING, ONE AT NOON, AND TWO IN THE EVENING

REACTIONS (4)
  - Loss of consciousness [Unknown]
  - Drug ineffective [Recovered/Resolved]
  - Agitation [Unknown]
  - Viral infection [Not Recovered/Not Resolved]

NARRATIVE: CASE EVENT DATE: 2017
